FAERS Safety Report 8003970-8 (Version None)
Quarter: 2011Q4

REPORT INFORMATION
  Report Type: 
  Country: None (occurrence: None)
  Receive Date: 20111222
  Receipt Date: 20111213
  Transmission Date: 20120403
  Serious: Yes (Hospitalization, Other)
  Sender: FDA-Public Use
  Company Number: US-ASTRAZENECA-2011SE58139

PATIENT
  Age: 92 Year
  Sex: Male

DRUGS (1)
  1. NEXIUM [Suspect]
     Route: 048

REACTIONS (4)
  - FALL [None]
  - CEREBROVASCULAR ACCIDENT [None]
  - HEAD INJURY [None]
  - CEREBRAL HAEMORRHAGE [None]
